FAERS Safety Report 9343015 (Version 2)
Quarter: 2013Q3

REPORT INFORMATION
  Report Type: Spontaneous
  Country: US (occurrence: US)
  Receive Date: 20130611
  Receipt Date: 20130715
  Transmission Date: 20140515
  Serious: Yes (Hospitalization, Other)
  Sender: FDA-Public Use
  Company Number: US-009507513-1306USA003671

PATIENT
  Age: 55 Year
  Sex: Male
  Weight: 100.68 kg

DRUGS (1)
  1. VICTRELIS [Suspect]
     Route: 048

REACTIONS (1)
  - Loss of consciousness [Not Recovered/Not Resolved]
